FAERS Safety Report 5498619-2 (Version None)
Quarter: 2007Q4

REPORT INFORMATION
  Report Type: 
  Country: None (occurrence: None)
  Receive Date: 20071026
  Receipt Date: 20071022
  Transmission Date: 20080405
  Serious: Yes (Life-Threatening, Disabling)
  Sender: FDA-Public Use
  Company Number: PHBS2007JP16995

PATIENT
  Age: 39 Year
  Sex: Male

DRUGS (11)
  1. GLEEVEC [Suspect]
     Indication: ACUTE LYMPHOCYTIC LEUKAEMIA
     Dosage: 800 MG/D
     Route: 048
     Dates: end: 20070115
  2. GLEEVEC [Suspect]
     Dosage: 600/D
     Route: 048
     Dates: start: 20070501
  3. DIFLUCAN [Concomitant]
     Dosage: 200/D
     Route: 048
  4. ALKERAN [Suspect]
     Dosage: 135 G/D
     Route: 042
     Dates: start: 20070115, end: 20070115
  5. FLUDARA [Suspect]
     Dosage: 42 G/D
     Route: 042
     Dates: start: 20070110, end: 20070114
  6. URSO 250 [Concomitant]
     Dosage: 300 G/D
     Route: 048
  7. ZOVIRAX [Concomitant]
     Dosage: 100 MG/D
     Route: 048
  8. DENOSINE [Concomitant]
     Route: 042
  9. METHOTREXATE [Concomitant]
     Indication: PROPHYLAXIS AGAINST GRAFT VERSUS HOST DISEASE
  10. TACROLIMUS [Concomitant]
     Indication: PROPHYLAXIS AGAINST GRAFT VERSUS HOST DISEASE
  11. FOSCARNET [Suspect]

REACTIONS (11)
  - ALTERED STATE OF CONSCIOUSNESS [None]
  - CONVULSION [None]
  - DISORIENTATION [None]
  - ENCEPHALITIS HERPES [None]
  - HUMAN HERPES VIRUS 6 SEROLOGY POSITIVE [None]
  - MECHANICAL VENTILATION [None]
  - MEMORY IMPAIRMENT [None]
  - PRURITUS GENERALISED [None]
  - PYREXIA [None]
  - RASH [None]
  - STATUS EPILEPTICUS [None]
